FAERS Safety Report 6203373-2 (Version None)
Quarter: 2009Q2

REPORT INFORMATION
  Report Type: 
  Country: None (occurrence: None)
  Receive Date: 20090521
  Receipt Date: 20090506
  Transmission Date: 20091009
  Serious: Yes (Other)
  Sender: FDA-Public Use
  Company Number: 2009001402

PATIENT
  Age: 69 Year
  Sex: Male

DRUGS (3)
  1. ERLOTINIB(ERLOTINIB) (TABLET) (ERLOTINIB) [Suspect]
     Indication: LUNG NEOPLASM MALIGNANT
     Dosage: (150 MG,QD),ORAL ; (100 MG,QD) ; (100 MG,QD)
     Route: 048
     Dates: start: 20090116, end: 20090207
  2. ERLOTINIB(ERLOTINIB) (TABLET) (ERLOTINIB) [Suspect]
     Indication: LUNG NEOPLASM MALIGNANT
     Dosage: (150 MG,QD),ORAL ; (100 MG,QD) ; (100 MG,QD)
     Route: 048
     Dates: start: 20090214, end: 20090310
  3. ERLOTINIB(ERLOTINIB) (TABLET) (ERLOTINIB) [Suspect]
     Indication: LUNG NEOPLASM MALIGNANT
     Dosage: (150 MG,QD),ORAL ; (100 MG,QD) ; (100 MG,QD)
     Route: 048
     Dates: start: 20090315

REACTIONS (2)
  - CACHEXIA [None]
  - DIARRHOEA [None]
